FAERS Safety Report 5833150-3 (Version None)
Quarter: 2008Q3

REPORT INFORMATION
  Report Type: 
  Country: None (occurrence: None)
  Receive Date: 20080805
  Receipt Date: 20080801
  Transmission Date: 20090109
  Serious: Yes (Hospitalization)
  Sender: FDA-Public Use
  Company Number: DE-WYE-G01951408

PATIENT
  Sex: Male
  Weight: 75 kg

DRUGS (2)
  1. TREVILOR RETARD [Suspect]
     Dosage: 10 TO 12 CAPSULES (OVERDOSE AMOUNT 1500 TO 1800 MG)
     Route: 048
     Dates: start: 20080731, end: 20080731
  2. ALCOHOL [Suspect]
     Dosage: OVERDOSE AMOUNT 2 LITERS OF RED WINE
     Route: 048
     Dates: start: 20080731, end: 20080731

REACTIONS (4)
  - AGGRESSION [None]
  - INTENTIONAL OVERDOSE [None]
  - SOMNOLENCE [None]
  - SUICIDE ATTEMPT [None]
